FAERS Safety Report 5386589-7 (Version None)
Quarter: 2007Q3

REPORT INFORMATION
  Report Type: 
  Country: None (occurrence: None)
  Receive Date: 20070713
  Receipt Date: 20070709
  Transmission Date: 20080115
  Serious: Yes (Hospitalization)
  Sender: FDA-Public Use
  Company Number: B0478756A

PATIENT
  Age: 82 Year
  Sex: Female

DRUGS (17)
  1. AUGMENTIN '125' [Suspect]
     Dosage: 1UNIT PER DAY
     Route: 042
     Dates: start: 20070615, end: 20070618
  2. CORDARONE [Suspect]
     Indication: ATRIAL FLUTTER
     Route: 042
     Dates: start: 20070616, end: 20070617
  3. CORDARONE [Suspect]
     Dosage: 2UNIT PER DAY
     Route: 048
     Dates: start: 20070616, end: 20070617
  4. PERFALGAN [Suspect]
     Route: 042
     Dates: start: 20070614, end: 20070618
  5. INTEGRILIN [Concomitant]
     Route: 065
     Dates: start: 20070615
  6. LASIX [Concomitant]
     Route: 065
     Dates: start: 20070615
  7. HEPARIN [Concomitant]
     Route: 065
     Dates: start: 20070615
  8. ATORVASTATIN CALCIUM [Concomitant]
     Indication: ATRIAL FLUTTER
     Dosage: 10MG PER DAY
     Route: 065
     Dates: start: 20070616
  9. PEPCID [Concomitant]
     Indication: ATRIAL FLUTTER
     Dosage: 40MG PER DAY
     Route: 065
     Dates: start: 20070616
  10. KARDEGIC [Concomitant]
     Indication: ATRIAL FLUTTER
     Dosage: 160MG PER DAY
     Route: 065
     Dates: start: 20070616
  11. ALLOPURINOL [Concomitant]
     Dosage: 200MG PER DAY
     Route: 065
  12. PRITOR [Concomitant]
     Dosage: 40MG PER DAY
     Route: 065
  13. TANAKAN [Concomitant]
     Route: 065
  14. AMARYL [Concomitant]
     Dosage: 1MG PER DAY
     Route: 065
  15. ALDALIX [Concomitant]
     Route: 065
  16. CATACOL [Concomitant]
     Route: 031
  17. XANAX [Concomitant]
     Dosage: .5MG TWICE PER DAY
     Route: 065

REACTIONS (11)
  - ALANINE AMINOTRANSFERASE INCREASED [None]
  - ASPARTATE AMINOTRANSFERASE INCREASED [None]
  - ATRIAL FLUTTER [None]
  - BLOOD ALKALINE PHOSPHATASE INCREASED [None]
  - GAMMA-GLUTAMYLTRANSFERASE INCREASED [None]
  - HEPATIC FUNCTION ABNORMAL [None]
  - HEPATIC PAIN [None]
  - HEPATOCELLULAR DAMAGE [None]
  - HEPATOJUGULAR REFLUX [None]
  - HEPATOMEGALY [None]
  - LIVER DISORDER [None]
